FAERS Safety Report 20571014 (Version 1)
Quarter: 2022Q1

REPORT INFORMATION
  Report Type: Spontaneous
  Country: US (occurrence: US)
  Receive Date: 20220309
  Receipt Date: 20220309
  Transmission Date: 20220424
  Serious: No
  Sender: FDA-Public Use
  Company Number: US-NOVARTISTESTPH-NVSC2022US052104

PATIENT
  Age: 74 Year
  Sex: Male

DRUGS (3)
  1. AMPICILLIN [Suspect]
     Active Substance: AMPICILLIN
     Indication: Product used for unknown indication
     Dosage: UNK
     Route: 065
  2. CABOMETYX [Suspect]
     Active Substance: CABOZANTINIB S-MALATE
     Indication: Thyroid cancer
     Dosage: 40 MG
     Route: 048
  3. KEFLEX [Suspect]
     Active Substance: CEPHALEXIN
     Indication: Urinary tract infection
     Dosage: UNK
     Route: 065

REACTIONS (10)
  - Dyspnoea [Unknown]
  - Urinary tract infection [Unknown]
  - Eosinophil count increased [Unknown]
  - Mean cell haemoglobin increased [Unknown]
  - Mean platelet volume decreased [Unknown]
  - Blood creatinine decreased [Unknown]
  - Blood thyroid stimulating hormone decreased [Unknown]
  - Blood thyroid stimulating hormone decreased [Unknown]
  - Headache [Unknown]
  - Blood pressure increased [Unknown]

NARRATIVE: CASE EVENT DATE: 20211130
